FAERS Safety Report 7917178-5 (Version None)
Quarter: 2011Q4

REPORT INFORMATION
  Report Type: 
  Country: None (occurrence: None)
  Receive Date: 20111104
  Receipt Date: 20111024
  Transmission Date: 20120403
  Serious: Yes (Hospitalization)
  Sender: FDA-Public Use
  Company Number: 2011030211

PATIENT
  Age: 69 Year
  Sex: Male

DRUGS (11)
  1. PRIVIGEN [Suspect]
     Indication: MYASTHENIA GRAVIS
     Dosage: SEE IMAGE
     Route: 042
     Dates: start: 20110919, end: 20110919
  2. PRIVIGEN [Suspect]
     Indication: MYASTHENIA GRAVIS
     Dosage: SEE IMAGE
     Route: 042
     Dates: start: 20110919, end: 20110919
  3. PRIVIGEN [Suspect]
     Indication: MYASTHENIA GRAVIS
     Dosage: SEE IMAGE
     Route: 042
     Dates: start: 20110603, end: 20110607
  4. PRIVIGEN [Suspect]
     Indication: MYASTHENIA GRAVIS
     Dosage: SEE IMAGE
     Route: 042
     Dates: start: 20110914, end: 20110914
  5. PRIVIGEN [Suspect]
     Indication: MYASTHENIA GRAVIS
     Dosage: SEE IMAGE
     Route: 042
     Dates: start: 20110919, end: 20110919
  6. PRIVIGEN [Suspect]
     Indication: MYASTHENIA GRAVIS
     Dosage: SEE IMAGE
     Route: 042
     Dates: start: 20110920, end: 20110920
  7. PRIVIGEN [Suspect]
     Indication: MYASTHENIA GRAVIS
     Dosage: SEE IMAGE
     Route: 042
     Dates: start: 20110913, end: 20110913
  8. PRIVIGEN [Suspect]
     Indication: MYASTHENIA GRAVIS
     Dosage: SEE IMAGE
     Route: 042
     Dates: start: 20110901
  9. PRIVIGEN [Suspect]
     Indication: MYASTHENIA GRAVIS
     Dosage: SEE IMAGE
     Route: 042
     Dates: start: 20110920, end: 20110920
  10. PRIVIGEN [Suspect]
     Indication: MYASTHENIA GRAVIS
     Dosage: SEE IMAGE
     Route: 042
     Dates: start: 20110603, end: 20110607
  11. PRIVIGEN [Suspect]
     Indication: MYASTHENIA GRAVIS
     Dosage: SEE IMAGE
     Route: 042
     Dates: start: 20110603, end: 20110607

REACTIONS (4)
  - HAEMOLYSIS [None]
  - HAEMOGLOBINURIA [None]
  - ACCIDENTAL OVERDOSE [None]
  - OFF LABEL USE [None]
